FAERS Safety Report 7524767-9 (Version None)
Quarter: 2011Q2

REPORT INFORMATION
  Report Type: 
  Country: None (occurrence: None)
  Receive Date: 20110525
  Receipt Date: 20110518
  Transmission Date: 20111010
  Serious: Yes (Other)
  Sender: FDA-Public Use
  Company Number: 2011106212

PATIENT
  Sex: Female

DRUGS (1)
  1. FRAGMIN [Suspect]

REACTIONS (2)
  - TONGUE PARALYSIS [None]
  - TONGUE DISCOLOURATION [None]
